FAERS Safety Report 21279154 (Version 4)
Quarter: 2022Q4

REPORT INFORMATION
  Report Type: Spontaneous
  Country: CA (occurrence: CA)
  Receive Date: 20220901
  Receipt Date: 20221201
  Transmission Date: 20230112
  Serious: Yes (Hospitalization, Other)
  Sender: FDA-Public Use
  Company Number: CA-CELLTRION INC.-2022CA013551

PATIENT

DRUGS (5)
  1. INFLECTRA [Suspect]
     Active Substance: INFLIXIMAB-DYYB
     Indication: Crohn^s disease
     Dosage: 10 MG/KG, WEEK 0,2,6 THEN MAINTENANCE FREQUENCY UNSPECIFIED
     Route: 042
     Dates: start: 20220802
  2. INFLECTRA [Suspect]
     Active Substance: INFLIXIMAB-DYYB
     Dosage: 10 MG/KG, WEEK 0,2,6 THEN Q 8 WEEKS
     Route: 042
     Dates: start: 20220802, end: 20220913
  3. INFLECTRA [Suspect]
     Active Substance: INFLIXIMAB-DYYB
     Dosage: 10 MG/KG, WEEK 0,2,6 THEN Q 8 WEEKS
     Route: 042
     Dates: start: 202208
  4. INFLECTRA [Suspect]
     Active Substance: INFLIXIMAB-DYYB
     Dosage: 10 MG/KG, WEEK 0,2,6 THEN Q 8 WEEKS
     Route: 042
     Dates: start: 20220817
  5. PREDNISONE [Concomitant]
     Active Substance: PREDNISONE
     Dosage: 1 DF, DOSAGE NOT AVAILABLE
     Route: 065
     Dates: start: 202208

REACTIONS (4)
  - Adverse event [Not Recovered/Not Resolved]
  - Haematochezia [Not Recovered/Not Resolved]
  - Colectomy [Unknown]
  - Off label use [Unknown]

NARRATIVE: CASE EVENT DATE: 20220101
